FAERS Safety Report 6825047-7 (Version None)
Quarter: 2010Q3

REPORT INFORMATION
  Report Type: 
  Country: None (occurrence: None)
  Receive Date: 20100708
  Receipt Date: 20061221
  Transmission Date: 20110219
  Serious: No
  Sender: FDA-Public Use
  Company Number: US-PFIZER INC-2007001287

PATIENT
  Sex: Female
  Weight: 76.2 kg

DRUGS (5)
  1. CHANTIX [Suspect]
     Indication: SMOKING CESSATION THERAPY
     Dates: start: 20061201
  2. LEVOXYL [Concomitant]
  3. PREMARIN [Concomitant]
  4. HYZAAR [Concomitant]
  5. LIPITOR [Concomitant]

REACTIONS (2)
  - DEPRESSED MOOD [None]
  - DISTURBANCE IN ATTENTION [None]
